FAERS Safety Report 5077566-4 (Version None)
Quarter: 2006Q3

REPORT INFORMATION
  Report Type: 
  Country: None (occurrence: None)
  Receive Date: 20060810
  Receipt Date: 20060406
  Transmission Date: 20061208
  Serious: No
  Sender: FDA-Public Use
  Company Number: US-GLAXOSMITHKLINE-A0600773A

PATIENT
  Age: 53 Year
  Sex: Female

DRUGS (3)
  1. PAROXETINE HCL [Suspect]
     Indication: DEPRESSION
     Dosage: 10MG PER DAY
     Route: 048
     Dates: start: 20050101, end: 20060101
  2. ZYRTEC [Concomitant]
  3. SYNTHROID [Concomitant]

REACTIONS (1)
  - VISUAL DISTURBANCE [None]
